FAERS Safety Report 21160864 (Version 1)
Quarter: 2022Q3

REPORT INFORMATION
  Report Type: Spontaneous
  Country: US (occurrence: US)
  Receive Date: 20220802
  Receipt Date: 20220802
  Transmission Date: 20221026
  Serious: No
  Sender: FDA-Public Use
  Company Number: US-drreddys-SPO/USA/22/0152732

PATIENT
  Age: 13 Year

DRUGS (1)
  1. ZENATANE [Suspect]
     Active Substance: ISOTRETINOIN
     Indication: Acne
     Dosage: RMA ISSUE DATE: 15 MARCH 2022 09:35:13 AM, 14 APRIL 2022 04:20:01 PM, 17 MAY 2022 03:58:23 PM AND 16

REACTIONS (1)
  - Treatment noncompliance [Unknown]
